FAERS Safety Report 9524052 (Version 3)
Quarter: 2013Q4

REPORT INFORMATION
  Report Type: Report from Study
  Country: CA (occurrence: CA)
  Receive Date: 20130916
  Receipt Date: 20131120
  Transmission Date: 20140711
  Serious: Yes (Other)
  Sender: FDA-Public Use
  Company Number: CA-ROCHE-1274233

PATIENT
  Age: 52 Year
  Sex: Female
  Weight: 89 kg

DRUGS (4)
  1. ACTEMRA [Suspect]
     Indication: RHEUMATOID ARTHRITIS
     Route: 042
     Dates: start: 20130430
  2. METHOTREXATE [Concomitant]
  3. FOLIC ACID [Concomitant]
  4. DEXILANT [Concomitant]

REACTIONS (1)
  - Pain [Not Recovered/Not Resolved]
